APPROVED DRUG PRODUCT: FLUPHENAZINE HYDROCHLORIDE
Active Ingredient: FLUPHENAZINE HYDROCHLORIDE
Strength: 5MG
Dosage Form/Route: TABLET;ORAL
Application: A089804 | Product #004
Applicant: PRASCO LLC DBA PRASCO LABORATORIES
Approved: Aug 12, 1988 | RLD: No | RS: No | Type: DISCN